FAERS Safety Report 7098250-1 (Version None)
Quarter: 2010Q4

REPORT INFORMATION
  Report Type: 
  Country: None (occurrence: None)
  Receive Date: 20101105
  Receipt Date: 20101028
  Transmission Date: 20110411
  Serious: Yes (Disabling)
  Sender: FDA-Public Use
  Company Number: 2010MA004035

PATIENT
  Age: 52 Year
  Sex: Female

DRUGS (5)
  1. TRAMADOL HYDROCHLORIDE [Suspect]
     Indication: ARTHRALGIA
     Dosage: QID; PO
     Route: 048
     Dates: start: 20101011, end: 20101011
  2. ACETAMINOPHEN [Concomitant]
  3. CHONDROITIN [Concomitant]
  4. GLUCOSAMINE [Concomitant]
  5. COD LIVER [Concomitant]

REACTIONS (1)
  - FEELING DRUNK [None]
